FAERS Safety Report 13927644 (Version 1)
Quarter: 2017Q3

REPORT INFORMATION
  Report Type: Spontaneous
  Country: US (occurrence: US)
  Receive Date: 20170831
  Receipt Date: 20170831
  Transmission Date: 20171127
  Serious: Yes (Hospitalization)
  Sender: FDA-Public Use
  Company Number: US-BEH-2017083204

PATIENT
  Sex: Male
  Weight: 12.38 kg

DRUGS (16)
  1. RANITIDINE. [Concomitant]
     Active Substance: RANITIDINE
  2. SINGULAIR [Concomitant]
     Active Substance: MONTELUKAST SODIUM
  3. NYSTATIN. [Concomitant]
     Active Substance: NYSTATIN
  4. HIZENTRA [Suspect]
     Active Substance: HUMAN IMMUNOGLOBULIN G
     Indication: IMMUNODEFICIENCY
     Dosage: 4 G, EVERY 2 WEEKS
     Route: 058
     Dates: start: 20170807
  5. VALCYTE [Concomitant]
     Active Substance: VALGANCICLOVIR HYDROCHLORIDE
  6. PREDNISONE. [Concomitant]
     Active Substance: PREDNISONE
  7. SODIUM CITRATE. [Concomitant]
     Active Substance: SODIUM CITRATE
  8. ASPIRIN. [Concomitant]
     Active Substance: ASPIRIN
  9. BACTRIM [Concomitant]
     Active Substance: SULFAMETHOXAZOLE\TRIMETHOPRIM
  10. LMX                                /00033401/ [Concomitant]
  11. HIZENTRA [Suspect]
     Active Substance: HUMAN IMMUNOGLOBULIN G
     Dosage: UNK
     Route: 058
  12. TACROLIMUS. [Concomitant]
     Active Substance: TACROLIMUS
  13. LASIX [Concomitant]
     Active Substance: FUROSEMIDE
  14. ENALAPRILAT. [Concomitant]
     Active Substance: ENALAPRILAT
  15. DIURIL                             /00011801/ [Concomitant]
  16. CELLCEPT [Concomitant]
     Active Substance: MYCOPHENOLATE MOFETIL\MYCOPHENOLATE MOFETIL HYDROCHLORIDE

REACTIONS (1)
  - Biopsy heart [Unknown]
